FAERS Safety Report 17053186 (Version 1)
Quarter: 2019Q4

REPORT INFORMATION
  Report Type: Spontaneous
  Country: US (occurrence: US)
  Receive Date: 20191120
  Receipt Date: 20191120
  Transmission Date: 20200122
  Serious: No
  Sender: FDA-Public Use
  Company Number: US-PFIZER INC-2019496059

PATIENT
  Age: 77 Year
  Sex: Male

DRUGS (4)
  1. EPLERENONE. [Suspect]
     Active Substance: EPLERENONE
     Indication: ATRIAL FIBRILLATION
     Dosage: 25 MG, 1X/DAY
     Route: 048
     Dates: start: 2019
  2. EPLERENONE. [Suspect]
     Active Substance: EPLERENONE
     Indication: ATRIAL FLUTTER
  3. MARIJUANA [Concomitant]
     Active Substance: CANNABIS SATIVA SUBSP. INDICA TOP
     Indication: SPINAL STENOSIS
     Dosage: UNK [USING IT 3-4 TIMES A WEEK]
     Dates: start: 2008
  4. EPLERENONE. [Suspect]
     Active Substance: EPLERENONE
     Indication: BLOOD PRESSURE INCREASED

REACTIONS (3)
  - Gynaecomastia [Not Recovered/Not Resolved]
  - Nipple pain [Not Recovered/Not Resolved]
  - Condition aggravated [Unknown]

NARRATIVE: CASE EVENT DATE: 201906
